FAERS Safety Report 9076567 (Version 1)
Quarter: 2013Q1

REPORT INFORMATION
  Report Type: Report from Study
  Country: US (occurrence: US)
  Receive Date: 20130129
  Receipt Date: 20130129
  Transmission Date: 20140127
  Serious: No
  Sender: FDA-Public Use
  Company Number: US-ABBOTT-12P-163-0944988-00

PATIENT
  Age: 61 Year
  Sex: Male

DRUGS (6)
  1. HUMIRA 40 MG/0.8 ML PEN [Suspect]
     Indication: PSORIASIS
     Dates: start: 20120515
  2. HUMIRA 40 MG/0.8 ML PEN [Suspect]
     Dates: start: 20120522
  3. HUMIRA 40 MG/0.8 ML PEN [Suspect]
     Dates: start: 20120606
  4. SIMVASTATIN [Concomitant]
     Indication: BLOOD CHOLESTEROL
  5. DOVONEX [Concomitant]
     Indication: PRODUCT USED FOR UNKNOWN INDICATION
  6. TACLONEX [Concomitant]
     Indication: PSORIASIS

REACTIONS (4)
  - Injection site pain [Not Recovered/Not Resolved]
  - Fatigue [Not Recovered/Not Resolved]
  - Fatigue [Not Recovered/Not Resolved]
  - Back pain [Not Recovered/Not Resolved]
